FAERS Safety Report 23053755 (Version 5)
Quarter: 2024Q3

REPORT INFORMATION
  Report Type: Spontaneous
  Country: FR (occurrence: FR)
  Receive Date: 20231011
  Receipt Date: 20240731
  Transmission Date: 20241017
  Serious: Yes (Life-Threatening, Hospitalization, Other)
  Sender: AUROBINDO
  Company Number: FR-SANDOZ-SDZ2023FR034216

PATIENT
  Age: 73 Year
  Sex: Female

DRUGS (4)
  1. AZACITIDINE [Suspect]
     Active Substance: AZACITIDINE
     Indication: Myelodysplastic syndrome
     Dosage: UNK
     Route: 065
     Dates: end: 20220118
  2. VENETOCLAX [Suspect]
     Active Substance: VENETOCLAX
     Indication: Myelodysplastic syndrome
     Dosage: UNK
     Route: 048
     Dates: start: 20220126, end: 20220126
  3. AMOXICILLIN [Concomitant]
     Active Substance: AMOXICILLIN
     Indication: Product used for unknown indication
     Dosage: 2 GRAM, ONCE A DAY
     Route: 065
     Dates: start: 20220204
  4. SOTROVIMAB [Concomitant]
     Active Substance: SOTROVIMAB
     Indication: COVID-19
     Dosage: 500 MILLIGRAM
     Route: 065
     Dates: start: 20220205

REACTIONS (4)
  - Neutropenia [Not Recovered/Not Resolved]
  - Myelodysplastic syndrome [Recovered/Resolved]
  - COVID-19 [Unknown]
  - Off label use [Unknown]

NARRATIVE: CASE EVENT DATE: 20220101
